FAERS Safety Report 4871060-9 (Version None)
Quarter: 2005Q4

REPORT INFORMATION
  Report Type: 
  Country: None (occurrence: None)
  Receive Date: 20051115
  Receipt Date: 20050801
  Transmission Date: 20060501
  Serious: Yes (Other)
  Sender: FDA-Public Use
  Company Number: 410454

PATIENT
  Age: 56 Year
  Sex: Male

DRUGS (7)
  1. PEGASYS [Suspect]
     Indication: HEPATITIS C VIRUS
     Dosage: 180 MCG 1 PER WEEK SUBCUTANEOUS
     Route: 058
     Dates: start: 20050509
  2. COPEGUS [Suspect]
     Indication: HEPATITIS C VIRUS
     Dosage: 400 MG 2 PER DAY ORAL
     Route: 048
     Dates: start: 20050509, end: 20050823
  3. NEURONTIN [Concomitant]
  4. ZOLOFT [Concomitant]
  5. COZAAR [Concomitant]
  6. SINEMET [Concomitant]
  7. VALTREX [Concomitant]

REACTIONS (6)
  - HAEMOGLOBIN DECREASED [None]
  - NEUTROPHIL COUNT DECREASED [None]
  - PLATELET COUNT DECREASED [None]
  - RED BLOOD CELL COUNT DECREASED [None]
  - SLUGGISHNESS [None]
  - WHITE BLOOD CELL COUNT DECREASED [None]
